FAERS Safety Report 9284955 (Version 1)
Quarter: 2013Q2

REPORT INFORMATION
  Report Type: Report from Study
  Country: BR (occurrence: BR)
  Receive Date: 20130513
  Receipt Date: 20130513
  Transmission Date: 20140414
  Serious: Yes (Hospitalization, Other)
  Sender: FDA-Public Use
  Company Number: PHHY2013BR045290

PATIENT
  Sex: Female
  Weight: 59 kg

DRUGS (6)
  1. EXJADE [Suspect]
     Indication: SICKLE CELL ANAEMIA
     Dosage: 1000 MG, DAILY (2 DF 500 MG OR 4 DF 250 MG)
     Route: 048
     Dates: start: 2008
  2. HYDREA [Concomitant]
     Dosage: UNK UKN, UNK
     Dates: start: 2008
  3. FOLIC ACID [Concomitant]
     Dosage: UNK UKN, UNK
  4. HIGROTON [Concomitant]
  5. CIPROFLOXACIN [Concomitant]
     Dosage: UNK UKN, UNK
     Dates: start: 2006
  6. TRAMADOL [Concomitant]
     Indication: PAIN

REACTIONS (6)
  - Urinary tract infection [Recovering/Resolving]
  - Joint swelling [Recovering/Resolving]
  - Joint effusion [Recovering/Resolving]
  - Pneumonia [Recovering/Resolving]
  - Pain [Recovering/Resolving]
  - Pain in extremity [Unknown]
